FAERS Safety Report 18799030 (Version 1)
Quarter: 2021Q1

REPORT INFORMATION
  Report Type: Spontaneous
  Country: US (occurrence: US)
  Receive Date: 20210127
  Receipt Date: 20210127
  Transmission Date: 20210419
  Serious: No
  Sender: FDA-Public Use
  Company Number: None

PATIENT
  Age: 21 Year
  Sex: Male
  Weight: 60.75 kg

DRUGS (2)
  1. MAGNESIUM [Concomitant]
     Active Substance: MAGNESIUM
  2. DEXTROAMPHET SACCHARAT, AMPHET ASPARTATE, DEXTROAMPHET SULFATE AND AMPHET SULFAT [Suspect]
     Active Substance: AMPHETAMINE ASPARTATE\AMPHETAMINE SULFATE\DEXTROAMPHETAMINE SACCHARATE\DEXTROAMPHETAMINE SULFATE
     Indication: ATTENTION DEFICIT HYPERACTIVITY DISORDER
     Dosage: ?          QUANTITY:30 CAPSULE(S);?
     Route: 048
     Dates: start: 20201218, end: 20210127

REACTIONS (6)
  - Drug ineffective [None]
  - Feeling abnormal [None]
  - Product substitution issue [None]
  - Headache [None]
  - Anxiety [None]
  - Fatigue [None]

NARRATIVE: CASE EVENT DATE: 20210121
